FAERS Safety Report 9521716 (Version 1)
Quarter: 2013Q3

REPORT INFORMATION
  Report Type: Report from Study
  Country: IN (occurrence: IN)
  Receive Date: 20130913
  Receipt Date: 20130913
  Transmission Date: 20140515
  Serious: Yes (Death, Hospitalization, Other)
  Sender: FDA-Public Use
  Company Number: PHHY2013IN101076

PATIENT
  Age: 85 Year
  Sex: Female

DRUGS (1)
  1. EXELON PATCH [Suspect]
     Indication: DEMENTIA ALZHEIMER^S TYPE
     Dosage: 9.5 MG, (10 CM) DAILY
     Route: 062
     Dates: start: 201107

REACTIONS (9)
  - Death [Fatal]
  - Pyrexia [Unknown]
  - Femoral neck fracture [Unknown]
  - Pathological fracture [Unknown]
  - Femur fracture [Unknown]
  - Osteoarthritis [Unknown]
  - Joint swelling [Unknown]
  - Arthralgia [Unknown]
  - Hypophagia [Unknown]
